FAERS Safety Report 7675662-6 (Version None)
Quarter: 2011Q3

REPORT INFORMATION
  Report Type: 
  Country: None (occurrence: None)
  Receive Date: 20110810
  Receipt Date: 20110808
  Transmission Date: 20111222
  Serious: Yes (Other)
  Sender: FDA-Public Use
  Company Number: JP-PFIZER INC-2011170316

PATIENT
  Age: 68 Year
  Sex: Male

DRUGS (3)
  1. VOGLIBOSE [Concomitant]
     Indication: DIABETES MELLITUS
     Dosage: 0.6 MG DAILY
     Route: 048
     Dates: start: 20080729
  2. METHYLPREDNISOLONE SODIUM SUCCINATE [Suspect]
     Indication: CYTOMEGALOVIRUS INFECTION
  3. METHYLPREDNISOLONE SODIUM SUCCINATE [Suspect]
     Indication: PNEUMOCYSTIS JIROVECI PNEUMONIA
     Dosage: 1000 MG DAILY
     Route: 041

REACTIONS (2)
  - DIABETES MELLITUS [None]
  - PNEUMATOSIS INTESTINALIS [None]
